FAERS Safety Report 9678816 (Version 5)
Quarter: 2014Q4

REPORT INFORMATION
  Report Type: Spontaneous
  Country: US (occurrence: US)
  Receive Date: 20131108
  Receipt Date: 20141009
  Transmission Date: 20150529
  Serious: Yes (Hospitalization, Other)
  Sender: FDA-Public Use
  Company Number: US-GLAXOSMITHKLINE-A1048910A

PATIENT
  Age: 69 Year
  Sex: Male
  Weight: 83 kg

DRUGS (20)
  1. LOMOTIL [Concomitant]
     Active Substance: ATROPINE SULFATE\DIPHENOXYLATE HYDROCHLORIDE
  2. OMEGA FISH OIL [Concomitant]
     Active Substance: FISH OIL\OMEGA-3 FATTY ACIDS
  3. RAMIPRIL. [Concomitant]
     Active Substance: RAMIPRIL
  4. MELPHALAN [Suspect]
     Active Substance: MELPHALAN
     Indication: PLASMA CELL MYELOMA
     Dosage: ^DAYS 1-4 EVERY 28 DAYS^9, 2MG TABLETS (18 MG DAILY ON DAYS 1-4 EVERY 28 DAYS
     Route: 048
     Dates: start: 20130513, end: 20140614
  5. CARBIDOPA AND LEVODOPA [Concomitant]
     Active Substance: CARBIDOPA\LEVODOPA
  6. DARBEPOETIN ALFA [Concomitant]
     Active Substance: DARBEPOETIN ALFA
  7. FIBER LAXATIVE [Concomitant]
     Active Substance: CALCIUM POLYCARBOPHIL
  8. SOMA [Concomitant]
     Active Substance: CARISOPRODOL
  9. PREDNISONE. [Suspect]
     Active Substance: PREDNISONE
     Indication: PRODUCT USED FOR UNKNOWN INDICATION
     Dosage: ^DAYS 1-4 EVERY 28 DAYS^6, 20 MG TABLETS
     Route: 048
     Dates: start: 20130513, end: 20130614
  10. CYCLOPHOSPHAMIDE. [Suspect]
     Active Substance: CYCLOPHOSPHAMIDE
     Indication: PRODUCT USED FOR UNKNOWN INDICATION
     Dosage: 50 MG
     Route: 048
     Dates: start: 20120622, end: 20120809
  11. AMBIEN [Concomitant]
     Active Substance: ZOLPIDEM TARTRATE
  12. DILAUDID [Concomitant]
     Active Substance: HYDROMORPHONE HYDROCHLORIDE
  13. VELCADE [Suspect]
     Active Substance: BORTEZOMIB
     Indication: PLASMA CELL MYELOMA
     Dosage: ADMINISTERED ON DAYS 1,4,8 AND 111.3 MG/M2
     Route: 058
     Dates: start: 20100901, end: 20130612
  14. GABAPENTIN. [Concomitant]
     Active Substance: GABAPENTIN
  15. OMEPRAZOLE. [Concomitant]
     Active Substance: OMEPRAZOLE
  16. DECADRON [Suspect]
     Active Substance: DEXAMETHASONE
     Indication: PRODUCT USED FOR UNKNOWN INDICATION
     Dosage: 4 MG4 DAYS ON, 4 DAYS OFF
     Route: 048
     Dates: start: 20120416
  17. PAMIDRONATE [Concomitant]
     Active Substance: PAMIDRONATE DISODIUM
  18. CYTOXAN [Suspect]
     Active Substance: CYCLOPHOSPHAMIDE
     Indication: PRODUCT USED FOR UNKNOWN INDICATION
     Dosage: UNK, U
  19. COENZYME Q10 [Concomitant]
     Active Substance: UBIDECARENONE
  20. VITAMIN D [Concomitant]
     Active Substance: CHOLECALCIFEROL

REACTIONS (9)
  - Anaemia [Recovering/Resolving]
  - Syncope [Recovering/Resolving]
  - Bundle branch block left [Recovering/Resolving]
  - Cardiomyopathy [Recovering/Resolving]
  - Systolic dysfunction [Recovering/Resolving]
  - Plasma cell myeloma [Recovering/Resolving]
  - Colitis [Recovering/Resolving]
  - Presyncope [Recovering/Resolving]
  - Bone pain [Recovering/Resolving]

NARRATIVE: CASE EVENT DATE: 20120722
